FAERS Safety Report 8429113-4 (Version None)
Quarter: 2012Q2

REPORT INFORMATION
  Report Type: 
  Country: None (occurrence: None)
  Receive Date: 20120612
  Receipt Date: 20120604
  Transmission Date: 20120825
  Serious: Yes (Other)
  Sender: FDA-Public Use
  Company Number: DE-JNJFOC-20120307735

PATIENT
  Age: 57 Year
  Sex: Female

DRUGS (1)
  1. SIMPONI [Suspect]
     Indication: RHEUMATOID ARTHRITIS
     Route: 058
     Dates: start: 20110830

REACTIONS (3)
  - TOOTH FRACTURE [None]
  - TOOTH DISCOLOURATION [None]
  - OSTEOPOROSIS [None]
